FAERS Safety Report 6086123-2 (Version None)
Quarter: 2009Q1

REPORT INFORMATION
  Report Type: 
  Country: None (occurrence: None)
  Receive Date: 20090217
  Receipt Date: 20090217
  Transmission Date: 20090719
  Serious: Yes (Other)
  Sender: FDA-Public Use
  Company Number: None

PATIENT
  Age: 58 Year
  Sex: Female
  Weight: 74.8435 kg

DRUGS (3)
  1. NEXIUM [Suspect]
     Indication: DYSPEPSIA
     Dosage: DAILY, BEFORE SUPP PO
     Route: 048
     Dates: start: 20080301, end: 20090213
  2. NEXIUM [Suspect]
     Indication: GASTROOESOPHAGEAL REFLUX DISEASE
     Dosage: DAILY, BEFORE SUPP PO
     Route: 048
     Dates: start: 20080301, end: 20090213
  3. NEXIUM [Suspect]
     Indication: HIATUS HERNIA
     Dosage: DAILY, BEFORE SUPP PO
     Route: 048
     Dates: start: 20080301, end: 20090213

REACTIONS (4)
  - ERYTHEMA [None]
  - GENERALISED ERYTHEMA [None]
  - PRURITUS [None]
  - URTICARIA [None]
